FAERS Safety Report 6643804-7 (Version None)
Quarter: 2010Q1

REPORT INFORMATION
  Report Type: 
  Country: None (occurrence: None)
  Receive Date: 20100316
  Receipt Date: 20100309
  Transmission Date: 20100710
  Serious: Yes (Hospitalization)
  Sender: FDA-Public Use
  Company Number: 2010SP014737

PATIENT
  Age: 49 Year
  Sex: Female

DRUGS (3)
  1. VIRAFERONPEG [Suspect]
     Indication: HEPATITIS C
     Dosage: 110 MCG;QW
     Dates: start: 20090914, end: 20091227
  2. RIBAVIRIN [Suspect]
     Indication: HEPATITIS C
     Dosage: 1000 MG;QD;PO
     Route: 048
     Dates: start: 20090914, end: 20091227
  3. TAHOR [Concomitant]

REACTIONS (4)
  - ASTHENIA [None]
  - CHEST PAIN [None]
  - MYOCARDITIS [None]
  - VOMITING [None]
